FAERS Safety Report 10141599 (Version 1)
Quarter: 2014Q2

REPORT INFORMATION
  Report Type: Spontaneous
  Country: SG (occurrence: SG)
  Receive Date: 20140429
  Receipt Date: 20140429
  Transmission Date: 20141212
  Serious: Yes (Death)
  Sender: FDA-Public Use
  Company Number: SG-BAYER-2014-062936

PATIENT
  Sex: Male

DRUGS (1)
  1. XOFIGO [Suspect]
     Dosage: UNK
     Dates: start: 20140210

REACTIONS (1)
  - Disease progression [Fatal]
